FAERS Safety Report 4501626-7 (Version None)
Quarter: 2004Q4

REPORT INFORMATION
  Report Type: 
  Country: None (occurrence: None)
  Receive Date: 20040928
  Receipt Date: 20040826
  Transmission Date: 20050328
  Serious: No
  Sender: FDA-Public Use
  Company Number: 04P-163-0271807-00

PATIENT
  Age: 72 Year
  Sex: Female
  Weight: 85.2762 kg

DRUGS (8)
  1. HUMIRA [Suspect]
     Indication: RHEUMATOID ARTHRITIS
     Dosage: 40 MG, 1 IN 2 WK, SUBCUTANEOUS
     Route: 058
     Dates: start: 20040603
  2. RYTHMOL SR [Concomitant]
  3. POTASSIUM CHLORIDE [Concomitant]
  4. SULFASALAZINE [Concomitant]
  5. TORSEMIDE [Concomitant]
  6. VERAPAMIL [Concomitant]
  7. CALCITONIN-SALMON [Concomitant]
  8. GLIMEPIRIDE [Concomitant]

REACTIONS (3)
  - DRUG INEFFECTIVE [None]
  - INJECTION SITE HAEMORRHAGE [None]
  - PRURITUS [None]
